FAERS Safety Report 5979510-1 (Version None)
Quarter: 2008Q4

REPORT INFORMATION
  Report Type: 
  Country: None (occurrence: None)
  Receive Date: 20081204
  Receipt Date: 20081201
  Transmission Date: 20090506
  Serious: No
  Sender: FDA-Public Use
  Company Number: US-B.I. PHARMACEUTICALS,INC./RIDGEFIELD-2008-BP-18011BP

PATIENT
  Sex: Male

DRUGS (6)
  1. SPIRIVA [Suspect]
     Indication: CHRONIC OBSTRUCTIVE PULMONARY DISEASE
     Route: 055
  2. SPIRIVA [Suspect]
     Indication: EMPHYSEMA
  3. ADVAIR HFA [Suspect]
  4. IPRATROPIUM BROMIDE [Concomitant]
     Route: 055
  5. ALBUTEROL [Concomitant]
     Route: 055
  6. COMBIVENT [Concomitant]

REACTIONS (3)
  - DRUG EFFECT DECREASED [None]
  - LARYNGITIS [None]
  - WHEEZING [None]
